FAERS Safety Report 11281360 (Version 1)
Quarter: 2015Q3

REPORT INFORMATION
  Report Type: Not Available
  Country: FR (occurrence: FR)
  Receive Date: 20150717
  Receipt Date: 20150717
  Transmission Date: 20151125
  Serious: Yes (Hospitalization)
  Sender: FDA-Public Use
  Company Number: FR-MUNDIPHARMA DS AND PHARMACOVIGILANCE-GBR-2015-0029536

PATIENT
  Age: 89 Year
  Sex: Female

DRUGS (7)
  1. OXYNORM [Suspect]
     Active Substance: OXYCODONE HYDROCHLORIDE
     Indication: PAIN
     Dosage: UNK, PRN
     Route: 048
     Dates: start: 201411, end: 201411
  2. HEMIGOXINE NATIVELLE [Concomitant]
     Active Substance: DIGOXIN
  3. PREVISCAN (PENTOXIFYLLINE) [Concomitant]
     Active Substance: PENTOXIFYLLINE
  4. COVERSYL                           /00790702/ [Concomitant]
     Active Substance: PERINDOPRIL
  5. BISOPROLOL [Concomitant]
     Active Substance: BISOPROLOL
  6. LASILIX                            /00032601/ [Concomitant]
     Active Substance: FUROSEMIDE
  7. EUPANTOL [Concomitant]
     Active Substance: PANTOPRAZOLE SODIUM

REACTIONS (1)
  - Faecaloma [Recovered/Resolved]

NARRATIVE: CASE EVENT DATE: 201411
